FAERS Safety Report 19160815 (Version 4)
Quarter: 2021Q3

REPORT INFORMATION
  Report Type: Spontaneous
  Country: IT (occurrence: IT)
  Receive Date: 20210421
  Receipt Date: 20210803
  Transmission Date: 20211014
  Serious: Yes (Death, Hospitalization, Other)
  Sender: FDA-Public Use
  Company Number: IT-CELLTRION INC.-2021IT005333

PATIENT

DRUGS (17)
  1. PACLITAXEL. [Suspect]
     Active Substance: PACLITAXEL
     Indication: METASTASES TO LIVER
     Dosage: INCREASED TO FULL DOSAGE OF 80 MG/M2 (DT 140 MG)/140 MILLIGRAM (80 MG/IN2)
     Route: 065
  2. TAMOXIFENE [TAMOXIFEN] [Concomitant]
     Active Substance: TAMOXIFEN
     Indication: HORMONE THERAPY
  3. CYCLOPHOSPHAMIDE. [Concomitant]
     Active Substance: CYCLOPHOSPHAMIDE
     Indication: BREAST CANCER METASTATIC
     Dosage: 600 MILLIGRAM/SQ. METER (ON DAY 1 OF 21 DAY CYCLE (4 CYCLES))
     Route: 065
     Dates: start: 2014
  4. TRASTUZUMAB (UNKNOWN) [Suspect]
     Active Substance: TRASTUZUMAB
     Dosage: 640 MG, EVERY 3 WEEKS (640 MILLIGRAM, Q3WK)
     Route: 041
     Dates: start: 20170519
  5. DOCETAXEL. [Concomitant]
     Active Substance: DOCETAXEL
     Indication: BREAST CANCER
  6. DOCETAXEL. [Concomitant]
     Active Substance: DOCETAXEL
     Indication: BREAST CANCER METASTATIC
     Dosage: 100 MILLIGRAM/SQ. METER (ON DAY 1 OF 21 DAYS CYCL)
     Route: 065
     Dates: start: 2014
  7. TRASTUZUMAB (UNKNOWN) [Suspect]
     Active Substance: TRASTUZUMAB
     Indication: METASTASES TO LIVER
     Dosage: 4 MILLIGRAM/KILOGRAM, LOADING DOSE
     Route: 041
     Dates: start: 2014
  8. PERTUZUMAB. [Suspect]
     Active Substance: PERTUZUMAB
     Indication: METASTASES TO LIVER
  9. EPIRUBICIN [Concomitant]
     Active Substance: EPIRUBICIN
     Indication: BREAST CANCER
  10. TRASTUZUMAB (UNKNOWN) [Suspect]
     Active Substance: TRASTUZUMAB
     Dosage: UNK, FOR ONE YEAR
     Route: 041
     Dates: start: 2014
  11. TAMOXIFENE [TAMOXIFEN] [Concomitant]
     Active Substance: TAMOXIFEN
     Indication: ADJUVANT THERAPY
  12. EPIRUBICIN [Concomitant]
     Active Substance: EPIRUBICIN
     Indication: BREAST CANCER METASTATIC
     Dosage: 75 MILLIGRAM/SQ. METER (ON DAY 1 OF 21 DAY CYCLE (4 CYCLES))
     Route: 065
     Dates: start: 2014
  13. PERTUZUMAB. [Suspect]
     Active Substance: PERTUZUMAB
     Indication: BREAST CANCER METASTATIC
     Dosage: 840 MG, EVERY 3 WEEKS
     Route: 042
     Dates: start: 20170519
  14. PACLITAXEL. [Suspect]
     Active Substance: PACLITAXEL
     Indication: BREAST CANCER METASTATIC
     Dosage: 76 MG, EVERY 1 WEEK (50% REDUCED DOSE DUE TO LIVER DYSFUNCTION) (76 MILLIGRAM, QWK)
     Route: 065
     Dates: start: 20170519
  15. TAMOXIFENE [TAMOXIFEN] [Concomitant]
     Active Substance: TAMOXIFEN
     Indication: BREAST CANCER METASTATIC
     Dosage: 20 MILLIGRAM, QD
     Route: 065
     Dates: start: 20150217
  16. TRASTUZUMAB (UNKNOWN) [Suspect]
     Active Substance: TRASTUZUMAB
     Indication: BREAST CANCER METASTATIC
     Dosage: 2 MILLIGRAM/KILOGRAM
     Route: 041
     Dates: start: 2014
  17. CYCLOPHOSPHAMIDE. [Concomitant]
     Active Substance: CYCLOPHOSPHAMIDE
     Indication: BREAST CANCER

REACTIONS (4)
  - Abdominal pain [Unknown]
  - Neurotoxicity [Recovering/Resolving]
  - Hepatic function abnormal [Recovering/Resolving]
  - Hepatic encephalopathy [Fatal]

NARRATIVE: CASE EVENT DATE: 2017
